FAERS Safety Report 5258778-3 (Version None)
Quarter: 2007Q1

REPORT INFORMATION
  Report Type: 
  Country: None (occurrence: None)
  Receive Date: 20070306
  Receipt Date: 20070306
  Transmission Date: 20070707
  Serious: Yes (Other)
  Sender: FDA-Public Use
  Company Number: None

PATIENT
  Age: 53 Year
  Sex: Female
  Weight: 54.4316 kg

DRUGS (1)
  1. BOTOX [Suspect]
     Indication: SKIN COSMETIC PROCEDURE
     Dosage: INJECTIONS TO FOREHEAD BROW
     Dates: start: 20070221, end: 20070221

REACTIONS (2)
  - EYELID PTOSIS [None]
  - ILL-DEFINED DISORDER [None]
